FAERS Safety Report 7502085-2 (Version None)
Quarter: 2011Q2

REPORT INFORMATION
  Report Type: 
  Country: None (occurrence: None)
  Receive Date: 20110525
  Receipt Date: 20110209
  Transmission Date: 20111010
  Serious: No
  Sender: FDA-Public Use
  Company Number: A0912697A

PATIENT
  Age: 51 Year
  Sex: Male
  Weight: 61.4 kg

DRUGS (3)
  1. VENTOLIN [Suspect]
     Indication: BRONCHOSPASM
     Route: 055
     Dates: start: 20110207
  2. AZITHROMYCIN [Concomitant]
     Route: 048
     Dates: start: 20110207
  3. IBUPROFEN [Concomitant]
     Route: 048
     Dates: start: 20110207

REACTIONS (1)
  - SALIVA ALCOHOL TEST POSITIVE [None]
